FAERS Safety Report 4286021-0 (Version None)
Quarter: 2004Q1

REPORT INFORMATION
  Report Type: 
  Country: None (occurrence: None)
  Receive Date: 20040203
  Receipt Date: 20040122
  Transmission Date: 20041129
  Serious: Yes (Death, Hospitalization, Other)
  Sender: FDA-Public Use
  Company Number: 2003120866

PATIENT
  Age: 75 Year
  Sex: Male

DRUGS (13)
  1. NORVASC [Suspect]
     Indication: ILL-DEFINED DISORDER
     Dosage: 10 MG (DAILY) ORAL
     Route: 048
     Dates: end: 20031011
  2. DIGOXIN [Concomitant]
  3. FUROSEMIDE [Concomitant]
  4. ALLOPURINOL [Concomitant]
  5. FERROUS SULFATE TAB [Concomitant]
  6. HYDRALAZINE HCL [Concomitant]
  7. ISOSORBIDE DINITRATE [Concomitant]
  8. OXYCODONE HCL [Concomitant]
  9. PREDNISONE [Concomitant]
  10. SIMVASTATIN [Concomitant]
  11. OXYCODONE HCL [Concomitant]
  12. SPIRONOLACTONE [Concomitant]
  13. QUININE SULFATE [Concomitant]

REACTIONS (1)
  - DEATH [None]
